FAERS Safety Report 4474962-0 (Version None)
Quarter: 2004Q3

REPORT INFORMATION
  Report Type: 
  Country: None (occurrence: None)
  Receive Date: 20040923
  Receipt Date: 20040813
  Transmission Date: 20050211
  Serious: Yes (Hospitalization, Other)
  Sender: FDA-Public Use
  Company Number: USA040671215

PATIENT
  Age: 67 Year
  Sex: Female
  Weight: 55 kg

DRUGS (3)
  1. EVISTA [Suspect]
     Indication: OSTEOPOROSIS
     Dosage: 60 MG/1 DAY
     Dates: start: 19980101
  2. FORTEO [Suspect]
     Indication: OSTEOPOROSIS
     Dates: start: 20040601
  3. FOSAMAX [Concomitant]

REACTIONS (8)
  - BONE DENSITY DECREASED [None]
  - DIZZINESS [None]
  - HAEMORRHAGE [None]
  - INJECTION SITE HAEMORRHAGE [None]
  - NAUSEA [None]
  - RECTOSIGMOID CANCER [None]
  - SOMNOLENCE [None]
  - TIBIA FRACTURE [None]
